FAERS Safety Report 6600337-1 (Version None)
Quarter: 2010Q1

REPORT INFORMATION
  Report Type: 
  Country: None (occurrence: None)
  Receive Date: 20100217
  Receipt Date: 20100203
  Transmission Date: 20100710
  Serious: Yes (Hospitalization, Other)
  Sender: FDA-Public Use
  Company Number: 1000011808

PATIENT
  Sex: Male

DRUGS (5)
  1. CITALOPRAM HYDROBROMIDE [Suspect]
     Indication: DEPRESSION
     Dosage: ONCE, ORAL, ORAL
     Route: 048
     Dates: start: 20090401
  2. CLOZARIL [Suspect]
     Indication: SCHIZOPHRENIA
     Dosage: 4100 MG, ONCE, ORAL, ORAL, 500 MG (250 MG, 2 IN 1 D), ORAL
     Route: 048
     Dates: start: 20080704
  3. CLOZARIL [Suspect]
     Indication: SCHIZOPHRENIA
     Dosage: 4100 MG, ONCE, ORAL, ORAL, 500 MG (250 MG, 2 IN 1 D), ORAL
     Route: 048
     Dates: start: 20090401
  4. QUETIAPINE [Suspect]
     Indication: SCHIZOPHRENIA
     Dosage: ONCE, ORAL, ORAL
     Route: 048
     Dates: start: 20090401
  5. PIRENZEPINE [Concomitant]

REACTIONS (5)
  - ALCOHOL USE [None]
  - MEMORY IMPAIRMENT [None]
  - MULTIPLE DRUG OVERDOSE [None]
  - SOMNOLENCE [None]
  - UNEVALUABLE EVENT [None]
